FAERS Safety Report 7250377-7 (Version None)
Quarter: 2011Q1

REPORT INFORMATION
  Report Type: 
  Country: None (occurrence: None)
  Receive Date: 20110118
  Receipt Date: 20101228
  Transmission Date: 20110831
  Serious: Yes (Hospitalization)
  Sender: FDA-Public Use
  Company Number: 2009BI010672

PATIENT
  Age: 56 Year
  Sex: Male
  Weight: 70.2 kg

DRUGS (14)
  1. ZEVALIN [Suspect]
  2. ANTIPYRETICS ANALGESICS [Concomitant]
  3. CYCLOPHOSPHAMIDE [Concomitant]
  4. VINCRISTINE [Concomitant]
  5. PREDNISOLONE [Concomitant]
  6. AGENTS [Concomitant]
  7. PLATELETS [Concomitant]
  8. ZEVALIN [Suspect]
     Indication: FOLLICLE CENTRE LYMPHOMA, FOLLICULAR GRADE I, II, III
     Dosage: 130 MBQ; 1X; IV; 1039 MBQ;1X; IV
     Route: 042
     Dates: start: 20081007, end: 20081007
  9. ZEVALIN [Suspect]
     Indication: FOLLICLE CENTRE LYMPHOMA, FOLLICULAR GRADE I, II, III
     Dosage: 130 MBQ; 1X; IV; 1039 MBQ;1X; IV
     Route: 042
     Dates: start: 20081014, end: 20081014
  10. FLUDARA [Concomitant]
  11. RITUXIMAB [Concomitant]
  12. ANTIHISTAMINES [Concomitant]
  13. DOXORUBICIN [Concomitant]
  14. BAKTAR [Concomitant]

REACTIONS (3)
  - NEUTROPHIL COUNT DECREASED [None]
  - UPPER RESPIRATORY TRACT INFLAMMATION [None]
  - CELLULITIS [None]
